FAERS Safety Report 19675335 (Version 1)
Quarter: 2021Q3

REPORT INFORMATION
  Report Type: Spontaneous
  Country: US (occurrence: US)
  Receive Date: 20210809
  Receipt Date: 20210809
  Transmission Date: 20211014
  Serious: Yes (Other)
  Sender: FDA-Public Use
  Company Number: US-ABBVIE-21K-163-4022256-00

PATIENT
  Sex: Male

DRUGS (1)
  1. SKYRIZI [Suspect]
     Active Substance: RISANKIZUMAB-RZAA
     Indication: PSORIASIS
     Dosage: WEEK 0?STARTED 3 WEEK AGO
     Route: 058
     Dates: start: 202106

REACTIONS (2)
  - Pericardial effusion [Unknown]
  - Chest pain [Unknown]

NARRATIVE: CASE EVENT DATE: 2021
